FAERS Safety Report 5149088-3 (Version None)
Quarter: 2006Q4

REPORT INFORMATION
  Report Type: 
  Country: None (occurrence: None)
  Receive Date: 20061113
  Receipt Date: 20061108
  Transmission Date: 20070319
  Serious: Yes (Hospitalization)
  Sender: FDA-Public Use
  Company Number: US-MERCK-0611USA02513

PATIENT
  Age: 86 Year
  Sex: Male

DRUGS (10)
  1. PEPCID [Suspect]
     Route: 042
     Dates: start: 20061013
  2. COREG [Suspect]
     Indication: VENTRICULAR DYSFUNCTION
     Route: 048
     Dates: start: 20061010
  3. COREG [Suspect]
     Route: 041
     Dates: start: 20061013
  4. PLAVIX [Suspect]
     Route: 042
     Dates: start: 20061013
  5. TRICOR [Suspect]
     Route: 042
     Dates: start: 20061013
  6. AMLODIPINE BESYLATE [Concomitant]
     Route: 065
  7. ASPIRIN [Concomitant]
     Route: 065
  8. NITROGLYCERIN [Concomitant]
     Route: 065
  9. ALBUTEROL SULFATE [Concomitant]
     Route: 065
  10. IPRATROPIUM BROMIDE [Concomitant]
     Route: 065

REACTIONS (3)
  - DRUG ADMINISTRATION ERROR [None]
  - INCORRECT ROUTE OF DRUG ADMINISTRATION [None]
  - WRONG TECHNIQUE IN DRUG USAGE PROCESS [None]
